FAERS Safety Report 20670638 (Version 1)
Quarter: 2022Q2

REPORT INFORMATION
  Report Type: Spontaneous
  Country: FR (occurrence: FR)
  Receive Date: 20220404
  Receipt Date: 20220404
  Transmission Date: 20220721
  Serious: Yes (Hospitalization)
  Sender: FDA-Public Use
  Company Number: None

PATIENT
  Age: 72 Year
  Sex: Male
  Weight: 88 kg

DRUGS (11)
  1. ALLOPURINOL [Suspect]
     Active Substance: ALLOPURINOL
     Indication: Product used for unknown indication
     Dosage: 200 MILLIGRAM, QD
     Route: 048
  2. FUROSEMIDE [Suspect]
     Active Substance: FUROSEMIDE
     Indication: Oedema peripheral
     Dosage: 60 MILLIGRAM, QD
     Route: 048
     Dates: end: 202003
  3. FUROSEMIDE [Suspect]
     Active Substance: FUROSEMIDE
     Indication: Hypertension
  4. INSPRA [Suspect]
     Active Substance: EPLERENONE
     Indication: Cardiac failure
     Dosage: 25 MILLIGRAM, QD
     Route: 048
     Dates: end: 202003
  5. CORDARONE [Concomitant]
     Active Substance: AMIODARONE HYDROCHLORIDE
     Dosage: UNK
  6. TAHOR [Concomitant]
     Active Substance: ATORVASTATIN CALCIUM
     Dosage: UNK
  7. LANTUS [Concomitant]
     Active Substance: INSULIN GLARGINE
     Dosage: UNK
  8. VILDAGLIPTIN [Concomitant]
     Active Substance: VILDAGLIPTIN
     Dosage: UNK
  9. OMEPRAZOLE [Concomitant]
     Active Substance: OMEPRAZOLE
     Dosage: UNK
  10. CARVEDILOL [Concomitant]
     Active Substance: CARVEDILOL
     Dosage: UNK
  11. RIVAROXABAN [Concomitant]
     Active Substance: RIVAROXABAN
     Dosage: UNK

REACTIONS (2)
  - Acute kidney injury [Recovered/Resolved with Sequelae]
  - Hyperkalaemia [Recovered/Resolved]

NARRATIVE: CASE EVENT DATE: 20200306
